FAERS Safety Report 12394685 (Version 1)
Quarter: 2016Q2

REPORT INFORMATION
  Report Type: Spontaneous
  Country: US (occurrence: US)
  Receive Date: 20160523
  Receipt Date: 20160523
  Transmission Date: 20160815
  Serious: No
  Sender: FDA-Public Use
  Company Number: US-FRESENIUS KABI-FK201602831

PATIENT
  Age: 18 Year
  Sex: Female

DRUGS (1)
  1. SENSORCAINE MPF [Suspect]
     Active Substance: BUPIVACAINE HYDROCHLORIDE
     Indication: LOCAL ANAESTHESIA
     Route: 065
     Dates: start: 20160519, end: 20160519

REACTIONS (2)
  - Skin discolouration [Recovered/Resolved]
  - Capillary nail refill test abnormal [Recovered/Resolved]

NARRATIVE: CASE EVENT DATE: 20160519
